FAERS Safety Report 4827178-X (Version None)
Quarter: 2005Q4

REPORT INFORMATION
  Report Type: 
  Country: None (occurrence: None)
  Receive Date: 20051014
  Receipt Date: 20050624
  Transmission Date: 20060501
  Serious: No
  Sender: FDA-Public Use
  Company Number: 2005SP001583

PATIENT
  Age: 75 Year
  Sex: Female
  Weight: 74.8435 kg

DRUGS (10)
  1. LUNESTA [Suspect]
     Indication: INSOMNIA
     Dosage: 1 MG; HS; ORAL, 1.5 MG; 1X; ORAL
     Route: 048
     Dates: start: 20050601, end: 20050601
  2. LUNESTA [Suspect]
     Indication: INSOMNIA
     Dosage: 1 MG; HS; ORAL, 1.5 MG; 1X; ORAL
     Route: 048
     Dates: start: 20050601, end: 20050625
  3. AMBIEN [Concomitant]
  4. DYAZIDE [Concomitant]
  5. DIOVANE [Concomitant]
  6. CLONIDINE [Concomitant]
  7. OXYCONTIN [Concomitant]
  8. ULTRAM [Concomitant]
  9. PROPOXYPHENE NAPSYLATE W/ ACETAMINOPHEN [Concomitant]
  10. SUMATRIPTAN SUCCINATE [Concomitant]

REACTIONS (1)
  - INSOMNIA [None]
